FAERS Safety Report 12826686 (Version 2)
Quarter: 2016Q4

REPORT INFORMATION
  Report Type: Report from Study
  Country: US (occurrence: US)
  Receive Date: 20161006
  Receipt Date: 20161012
  Transmission Date: 20170207
  Serious: Yes (Other)
  Sender: FDA-Public Use
  Company Number: US-BAYER-2016-190297

PATIENT
  Age: 58 Year
  Sex: Female
  Weight: 77.11 kg

DRUGS (3)
  1. ADEMPAS [Suspect]
     Active Substance: RIOCIGUAT
     Indication: PULMONARY HYPERTENSION
     Dosage: 1 MG, TID
     Route: 048
  2. XARELTO [Suspect]
     Active Substance: RIVAROXABAN
     Dosage: UNK
  3. ADEMPAS [Suspect]
     Active Substance: RIOCIGUAT
     Indication: PULMONARY HYPERTENSION
     Dosage: UNK
     Dates: start: 20160810

REACTIONS (5)
  - Diarrhoea [Recovered/Resolved]
  - Impaired gastric emptying [Unknown]
  - Dyspepsia [Unknown]
  - Headache [Recovered/Resolved]
  - Odynophagia [Unknown]

NARRATIVE: CASE EVENT DATE: 2016
